FAERS Safety Report 8115368-2 (Version None)
Quarter: 2012Q1

REPORT INFORMATION
  Report Type: 
  Country: None (occurrence: None)
  Receive Date: 20120206
  Receipt Date: 20120206
  Transmission Date: 20120608
  Serious: Yes (Other)
  Sender: FDA-Public Use
  Company Number: None

PATIENT
  Age: 44 Year
  Sex: Female
  Weight: 67.585 kg

DRUGS (1)
  1. AVELOX [Suspect]
     Indication: BRONCHITIS
     Dosage: 1 TABLET
     Route: 048
     Dates: start: 20120202, end: 20120203

REACTIONS (12)
  - CONFUSIONAL STATE [None]
  - INSOMNIA [None]
  - RESTLESSNESS [None]
  - DIZZINESS [None]
  - SINUS CONGESTION [None]
  - DISORIENTATION [None]
  - PALPITATIONS [None]
  - AGITATION [None]
  - SOMNOLENCE [None]
  - PARAESTHESIA [None]
  - DRY MOUTH [None]
  - PANIC ATTACK [None]
